FAERS Safety Report 17498260 (Version 2)
Quarter: 2020Q2

REPORT INFORMATION
  Report Type: Spontaneous
  Country: PL (occurrence: PL)
  Receive Date: 20200304
  Receipt Date: 20200520
  Transmission Date: 20200713
  Serious: Yes (Life-Threatening, Hospitalization)
  Sender: FDA-Public Use
  Company Number: NVSC2020PL057984

PATIENT
  Age: 65 Year
  Sex: Female

DRUGS (5)
  1. CEFAZOLIN [Suspect]
     Active Substance: CEFAZOLIN
     Dosage: INTRADERMAL ADMINISTRATION OF 1:10000 DILUTION OF CEFAZOLIN
     Route: 023
  2. CEFUROXIME. [Suspect]
     Active Substance: CEFUROXIME
     Indication: ANTIBIOTIC THERAPY
     Dosage: 250 MG (TABLET)
     Route: 048
     Dates: start: 201803
  3. CEFAZOLIN [Suspect]
     Active Substance: CEFAZOLIN
     Indication: SKIN TEST
     Dosage: UNK (1:10,000)
     Route: 023
  4. CEFUROXIME. [Suspect]
     Active Substance: CEFUROXIME
     Dosage: UNK (A DROP OF CEFUROXIME ORAL SUSPENSION)
     Route: 048
  5. CEFUROXIME. [Suspect]
     Active Substance: CEFUROXIME
     Dosage: GIVEN SEVERAL YEARS PRIOR TO THE CURRENT HOSPITALISATION AT AN UNSPECIFIED DOSAGE
     Route: 048

REACTIONS (15)
  - Drug hypersensitivity [Unknown]
  - Localised oedema [Recovered/Resolved]
  - Oedema peripheral [Recovered/Resolved]
  - Abdominal pain [Recovered/Resolved]
  - Accidental exposure to product [Unknown]
  - Hypersensitivity [Recovered/Resolved]
  - Anaphylactic reaction [Recovered/Resolved]
  - Therapeutic product cross-reactivity [Unknown]
  - Anal incontinence [Recovered/Resolved]
  - Face oedema [Recovered/Resolved]
  - Erythema [Recovered/Resolved]
  - Pruritus [Recovered/Resolved]
  - Anaphylactic shock [Unknown]
  - Dyspnoea [Recovered/Resolved]
  - Tachycardia [Recovered/Resolved]

NARRATIVE: CASE EVENT DATE: 201803
